FAERS Safety Report 9286524 (Version 2)
Quarter: 2013Q2

REPORT INFORMATION
  Report Type: Spontaneous
  Country: FR (occurrence: None)
  Receive Date: 20130508
  Receipt Date: 20130516
  Transmission Date: 20140414
  Serious: Yes (Other)
  Sender: FDA-Public Use
  Company Number: FR-011576

PATIENT
  Age: 72 Year
  Sex: Male
  Weight: 76 kg

DRUGS (1)
  1. DEGARELIX (FIRMAGON) (240 MG, 80 MG) [Suspect]
     Indication: PROSTATE CANCER
     Route: 058
     Dates: start: 20130215, end: 20130215

REACTIONS (1)
  - Urticaria [None]
